FAERS Safety Report 7037364-9 (Version None)
Quarter: 2010Q4

REPORT INFORMATION
  Report Type: 
  Country: None (occurrence: None)
  Receive Date: 20101011
  Receipt Date: 20100928
  Transmission Date: 20110411
  Serious: Yes (Hospitalization)
  Sender: FDA-Public Use
  Company Number: US-EISAI INC.-E7272-00078-SPO-US

PATIENT
  Sex: Female

DRUGS (1)
  1. ONTAK [Suspect]
     Dosage: UNKNOWN
     Route: 041
     Dates: start: 20100910, end: 20100910

REACTIONS (1)
  - INTESTINAL OBSTRUCTION [None]
